FAERS Safety Report 12271437 (Version 1)
Quarter: 2016Q2

REPORT INFORMATION
  Report Type: Report from Study
  Country: CA (occurrence: CA)
  Receive Date: 20160415
  Receipt Date: 20160415
  Transmission Date: 20160815
  Serious: Yes (Other)
  Sender: FDA-Public Use
  Company Number: CA-AMGEN-CANSL2015104298

PATIENT
  Age: 68 Year
  Sex: Female

DRUGS (7)
  1. OXYCODON [Concomitant]
     Active Substance: OXYCODONE
  2. TYLENOL [Concomitant]
     Active Substance: ACETAMINOPHEN
  3. PROLIA [Suspect]
     Active Substance: DENOSUMAB
     Indication: OSTEOPOROSIS POSTMENOPAUSAL
     Dosage: 60 MG, Q6MO
     Route: 058
     Dates: start: 20140217
  4. MAGNESIUM [Concomitant]
     Active Substance: MAGNESIUM
     Dosage: UNK
  5. CALCIUM [Concomitant]
     Active Substance: CALCIUM
     Dosage: UNK
  6. VITAMIN D                          /00107901/ [Concomitant]
     Active Substance: ERGOCALCIFEROL
     Dosage: UNK
  7. SILICEA                            /02137601/ [Concomitant]

REACTIONS (21)
  - Spinal fracture [Unknown]
  - Hand fracture [Unknown]
  - Vaginal infection [Unknown]
  - Burning sensation [Unknown]
  - Lumbar vertebral fracture [Unknown]
  - Ear infection [Unknown]
  - Spinal pain [Unknown]
  - Cyst [Unknown]
  - Skin irritation [Unknown]
  - Gastrointestinal disorder [Unknown]
  - Dental caries [Unknown]
  - Renal disorder [Unknown]
  - Adverse drug reaction [Unknown]
  - Exostosis [Unknown]
  - Joint range of motion decreased [Unknown]
  - Dry mouth [Unknown]
  - Cough [Unknown]
  - Bronchitis [Unknown]
  - Pain in extremity [Not Recovered/Not Resolved]
  - Osteoarthritis [Unknown]
  - Urinary tract infection [Unknown]

NARRATIVE: CASE EVENT DATE: 2014
